FAERS Safety Report 12863627 (Version 2)
Quarter: 2017Q2

REPORT INFORMATION
  Report Type: Spontaneous
  Country: US (occurrence: US)
  Receive Date: 20161019
  Receipt Date: 20170428
  Transmission Date: 20170830
  Serious: Yes (Other)
  Sender: FDA-Public Use
  Company Number: US-CELGENEUS-USA-2016103326

PATIENT
  Age: 62 Year
  Sex: Female

DRUGS (2)
  1. OTEZLA [Suspect]
     Active Substance: APREMILAST
     Indication: PSORIASIS
     Dosage: 60 MILLIGRAM
     Route: 048
     Dates: start: 20160907
  2. OTEZLA [Suspect]
     Active Substance: APREMILAST
     Route: 048

REACTIONS (7)
  - Muscle spasms [Unknown]
  - Nausea [Unknown]
  - Nasal congestion [Unknown]
  - Secretion discharge [Unknown]
  - Diarrhoea [Unknown]
  - Vomiting [Unknown]
  - Weight decreased [Unknown]

NARRATIVE: CASE EVENT DATE: 20160908
